FAERS Safety Report 20695587 (Version 1)
Quarter: 2022Q2

REPORT INFORMATION
  Report Type: Spontaneous
  Country: US (occurrence: None)
  Receive Date: 20220408
  Receipt Date: 20220408
  Transmission Date: 20220721
  Serious: No
  Sender: FDA-Public Use
  Company Number: None

PATIENT
  Age: 55 Year
  Sex: Male

DRUGS (2)
  1. GONADORELIN [Suspect]
     Active Substance: GONADORELIN
     Indication: Testicular atrophy
     Dosage: OTHER FREQUENCY : TWICE WEEKLY;?
     Route: 058
     Dates: start: 20220131
  2. TESTOSTERONE CYPIONATE [Concomitant]
     Active Substance: TESTOSTERONE CYPIONATE

REACTIONS (5)
  - Recalled product administered [None]
  - Injection site erythema [None]
  - Injection site swelling [None]
  - Injection site rash [None]
  - Pyrexia [None]

NARRATIVE: CASE EVENT DATE: 20220214
